FAERS Safety Report 6272258-8 (Version None)
Quarter: 2009Q3

REPORT INFORMATION
  Report Type: 
  Country: None (occurrence: None)
  Receive Date: 20090717
  Receipt Date: 20090706
  Transmission Date: 20100115
  Serious: Yes (Death, Life-Threatening, Hospitalization, Other)
  Sender: FDA-Public Use
  Company Number: JP-PFIZER INC-2009223223

PATIENT
  Age: 60 Year

DRUGS (6)
  1. ZYVOX [Suspect]
     Indication: STAPHYLOCOCCAL INFECTION
     Dosage: 600 MG, 2X/DAY
     Route: 042
     Dates: start: 20081118, end: 20081125
  2. ZYVOX [Suspect]
     Dosage: 600 MG, 2X/DAY
     Route: 048
     Dates: start: 20081209, end: 20081212
  3. EPOGIN [Concomitant]
     Route: 042
     Dates: start: 20081105, end: 20090106
  4. DOGMATYL [Concomitant]
     Route: 048
     Dates: start: 20081113, end: 20081210
  5. MUCOSAL [Concomitant]
     Route: 048
     Dates: start: 20081113, end: 20090102
  6. TAKEPRON [Concomitant]
     Route: 048
     Dates: start: 20081118, end: 20090102

REACTIONS (3)
  - ANAEMIA [None]
  - PLATELET COUNT DECREASED [None]
  - SEPSIS [None]
